FAERS Safety Report 6508142-1 (Version None)
Quarter: 2009Q4

REPORT INFORMATION
  Report Type: 
  Country: None (occurrence: None)
  Receive Date: 20091221
  Receipt Date: 20091211
  Transmission Date: 20100525
  Serious: Yes (Other)
  Sender: FDA-Public Use
  Company Number: CR-PFIZER INC-2009214629

PATIENT
  Age: 57 Year

DRUGS (15)
  1. BLINDED *IBUPROFEN [Suspect]
     Indication: RHEUMATOID ARTHRITIS
     Route: 048
     Dates: start: 20080805, end: 20090323
  2. BLINDED *NAPROXEN [Suspect]
     Indication: RHEUMATOID ARTHRITIS
     Route: 048
     Dates: start: 20080805, end: 20090323
  3. BLINDED *NO SUBJECT DRUG [Suspect]
     Indication: RHEUMATOID ARTHRITIS
     Route: 048
     Dates: start: 20080805, end: 20090323
  4. BLINDED *PLACEBO [Suspect]
     Indication: RHEUMATOID ARTHRITIS
     Route: 048
     Dates: start: 20080805, end: 20090323
  5. BLINDED CELECOXIB [Suspect]
     Indication: RHEUMATOID ARTHRITIS
     Route: 048
     Dates: start: 20080805, end: 20090323
  6. BLINDED IBUPROFEN [Suspect]
     Route: 048
     Dates: start: 20080805, end: 20090323
  7. BLINDED NAPROXEN [Suspect]
     Route: 048
     Dates: start: 20080805, end: 20090323
  8. ESOMEPRAZOLE [Concomitant]
     Route: 048
     Dates: start: 20080805, end: 20090323
  9. COLCHICINE [Concomitant]
     Dosage: UNK
     Route: 048
     Dates: start: 20000101
  10. SILDENAFIL CITRATE [Concomitant]
     Indication: ERECTILE DYSFUNCTION
     Dosage: UNK
     Route: 048
     Dates: start: 20080301
  11. METHOTREXATE [Concomitant]
     Route: 048
     Dates: start: 20080307
  12. ACETAMINOPHEN [Concomitant]
     Dosage: UNK
     Route: 048
     Dates: start: 20070101
  13. VERAPAMIL HYDROCHLORIDE [Concomitant]
     Route: 048
     Dates: start: 20090408
  14. ENALAPRIL MALEATE [Concomitant]
     Route: 048
     Dates: start: 20081006
  15. PENICILLAMINE [Concomitant]
     Dosage: UNK
     Route: 048
     Dates: start: 20090101, end: 20090320

REACTIONS (1)
  - RENAL IMPAIRMENT [None]
